FAERS Safety Report 19510361 (Version 3)
Quarter: 2021Q3

REPORT INFORMATION
  Report Type: Report from Study
  Country: ZA (occurrence: ZA)
  Receive Date: 20210708
  Receipt Date: 20210713
  Transmission Date: 20211014
  Serious: Yes (Other)
  Sender: FDA-Public Use
  Company Number: ZA-BIOGEN-2021BI01027156

PATIENT
  Age: 28 Year
  Sex: Female

DRUGS (3)
  1. HY (MICROVAL) [Concomitant]
     Indication: CONTRACEPTION
     Route: 065
     Dates: start: 202101, end: 20210627
  2. PLEGRIDY [Suspect]
     Active Substance: PEGINTERFERON BETA-1A
     Indication: RELAPSING-REMITTING MULTIPLE SCLEROSIS
     Route: 058
     Dates: start: 20190307
  3. HY (MICROVAL) [Concomitant]
     Route: 065

REACTIONS (1)
  - Deep vein thrombosis [Unknown]

NARRATIVE: CASE EVENT DATE: 20210504
